FAERS Safety Report 5339035-3 (Version None)
Quarter: 2007Q2

REPORT INFORMATION
  Report Type: 
  Country: None (occurrence: None)
  Receive Date: 20070402
  Receipt Date: 20061107
  Transmission Date: 20071010
  Serious: Yes (Other)
  Sender: FDA-Public Use
  Company Number: 2006BL006347

PATIENT
  Age: 75 Year
  Sex: Female

DRUGS (2)
  1. VITRASERT [Suspect]
     Indication: CYTOMEGALOVIRUS CHORIORETINITIS
     Dosage: 4.5 MILLIGRAMS; ONCE A DAY; RIGHT EYE
     Dates: start: 20061027
  2. FOSCARNET [Concomitant]

REACTIONS (2)
  - CONDITION AGGRAVATED [None]
  - CYTOMEGALOVIRUS CHORIORETINITIS [None]
